FAERS Safety Report 4581707-2 (Version None)
Quarter: 2005Q1

REPORT INFORMATION
  Report Type: 
  Country: None (occurrence: None)
  Receive Date: 20050214
  Receipt Date: 20041222
  Transmission Date: 20050727
  Serious: No
  Sender: FDA-Public Use
  Company Number: US-GLAXOSMITHKLINE-A0538293A

PATIENT
  Age: 32 Year
  Sex: Female

DRUGS (5)
  1. LAMICTAL [Suspect]
     Indication: ILL-DEFINED DISORDER
     Dosage: 100MG UNKNOWN
     Route: 048
     Dates: start: 20041101, end: 20041201
  2. WELLBUTRIN XL [Concomitant]
  3. PAXIL CR [Concomitant]
  4. COUMADIN [Concomitant]
  5. SEROQUEL [Concomitant]

REACTIONS (1)
  - INTERNATIONAL NORMALISED RATIO INCREASED [None]
